FAERS Safety Report 5265710-5 (Version None)
Quarter: 2007Q1

REPORT INFORMATION
  Report Type: 
  Country: None (occurrence: None)
  Receive Date: 20061213
  Receipt Date: 20030916
  Transmission Date: 20070707
  Serious: Yes (Other)
  Sender: FDA-Public Use
  Company Number: 2003UW11894

PATIENT
  Age: 61 Year
  Sex: Male
  Weight: 70.3075 kg

DRUGS (4)
  1. IRESSA [Suspect]
     Indication: LUNG NEOPLASM MALIGNANT
     Dosage: 500 MG DAILY PO
     Route: 048
  2. WELLBUTRIN [Concomitant]
  3. SEROQUEL [Concomitant]
  4. NEXIUM [Concomitant]

REACTIONS (1)
  - LIBIDO DECREASED [None]
